FAERS Safety Report 22034797 (Version 1)
Quarter: 2023Q1

REPORT INFORMATION
  Report Type: Spontaneous
  Country: US (occurrence: US)
  Receive Date: 20230224
  Receipt Date: 20230224
  Transmission Date: 20230418
  Serious: No
  Sender: FDA-Public Use
  Company Number: US-BAYER-2023A016518

PATIENT
  Age: 81 Year
  Sex: Male

DRUGS (2)
  1. MIRALAX [Suspect]
     Active Substance: POLYETHYLENE GLYCOL 3350
     Indication: Gastrointestinal disorder
     Dosage: 1 CAPFUL MIX WITH COFFEE IN THE MORNING DOSE
     Route: 048
     Dates: start: 20230211, end: 20230211
  2. BUTAMIRATE CITRATE [Concomitant]
     Active Substance: BUTAMIRATE CITRATE

REACTIONS (2)
  - Feeling hot [Unknown]
  - Incorrect dose administered [Unknown]

NARRATIVE: CASE EVENT DATE: 20230211
